FAERS Safety Report 4875783-7 (Version None)
Quarter: 2006Q1

REPORT INFORMATION
  Report Type: 
  Country: None (occurrence: None)
  Receive Date: 20060104
  Receipt Date: 20051222
  Transmission Date: 20060701
  Serious: Yes (Hospitalization)
  Sender: FDA-Public Use
  Company Number: US016584

PATIENT
  Age: 64 Year
  Sex: Male

DRUGS (2)
  1. MODAFINIL [Suspect]
     Indication: SLEEP APNOEA SYNDROME
     Dosage: 200 MG QD ORAL
     Route: 048
     Dates: start: 20051124, end: 20051206
  2. MODAFINIL [Suspect]
     Indication: SOMNOLENCE
     Dosage: 200 MG QD ORAL
     Route: 048
     Dates: start: 20051124, end: 20051206

REACTIONS (1)
  - ANGINA PECTORIS [None]
